FAERS Safety Report 7795964-2 (Version None)
Quarter: 2011Q4

REPORT INFORMATION
  Report Type: 
  Country: None (occurrence: None)
  Receive Date: 20111004
  Receipt Date: 20110927
  Transmission Date: 20120403
  Serious: Yes (Life-Threatening, Hospitalization)
  Sender: FDA-Public Use
  Company Number: US-BAYER-2011-029183

PATIENT
  Age: 42 Year
  Sex: Female
  Weight: 94 kg

DRUGS (22)
  1. FLOVENT [Concomitant]
  2. SINGULAIR [Concomitant]
     Dosage: 10 MG, UNK
     Route: 048
  3. OXYCODONE HCL [Concomitant]
  4. DILAUDID [Concomitant]
  5. DURATUSS [Concomitant]
  6. VICODIN [Concomitant]
     Dosage: 7.5-750
  7. ASTHMA MEDICATIONS [Concomitant]
  8. NSAID'S [Concomitant]
  9. ADVAIR DISKUS 100/50 [Concomitant]
     Dosage: 100-50
  10. PROAIR HFA [Concomitant]
     Route: 055
  11. XANAX [Concomitant]
     Dosage: 0.25 MG, UNK
  12. ANTIBIOTICS [Concomitant]
  13. MORPHINE [Concomitant]
  14. ALBUTEROL [Concomitant]
     Route: 055
  15. YASMIN [Suspect]
     Indication: OVARIAN CYST
     Dosage: UNK
     Route: 048
     Dates: start: 20070101, end: 20090101
  16. IBUPROFEN [Concomitant]
     Dosage: 800 MG, UNK
  17. MOTRIN [Concomitant]
  18. YAZ [Suspect]
     Indication: OVARIAN CYST
     Route: 048
  19. DROSPIRENONE AND ETHINYL ESTRADIOL [Suspect]
     Indication: OVARIAN CYST
     Dosage: UNK
     Route: 048
     Dates: start: 20070101, end: 20090101
  20. ASCORBIC ACID [Concomitant]
  21. ARIXTRA [Concomitant]
  22. NASONEX [Concomitant]
     Dosage: 50 MCG
     Route: 055

REACTIONS (5)
  - THROMBOSIS [None]
  - PULMONARY EMBOLISM [None]
  - PAIN [None]
  - ANXIETY [None]
  - INJURY [None]
